FAERS Safety Report 5904311-X (Version None)
Quarter: 2008Q3

REPORT INFORMATION
  Report Type: 
  Country: None (occurrence: None)
  Receive Date: 20080930
  Receipt Date: 20080930
  Transmission Date: 20090109
  Serious: Yes (Life-Threatening, Hospitalization)
  Sender: FDA-Public Use
  Company Number: None

PATIENT
  Age: 63 Year
  Sex: Male
  Weight: 79.3795 kg

DRUGS (2)
  1. ZOSYN [Suspect]
     Indication: ABDOMINAL ABSCESS
     Dosage: 4.5GM Q8H IV BOLUS
     Route: 040
     Dates: start: 20080822, end: 20080918
  2. ZOSYN [Suspect]
     Indication: POSTOPERATIVE WOUND INFECTION
     Dosage: 4.5GM Q8H IV BOLUS
     Route: 040
     Dates: start: 20080822, end: 20080918

REACTIONS (6)
  - EOSINOPHIL COUNT INCREASED [None]
  - HYPOTENSION [None]
  - NEUTROPHIL COUNT INCREASED [None]
  - PYREXIA [None]
  - TACHYCARDIA [None]
  - WHITE BLOOD CELL COUNT INCREASED [None]
